FAERS Safety Report 17413632 (Version 1)
Quarter: 2020Q1

REPORT INFORMATION
  Report Type: Spontaneous
  Country: US (occurrence: US)
  Receive Date: 20200213
  Receipt Date: 20200213
  Transmission Date: 20200409
  Serious: Yes (Disabling)
  Sender: FDA-Public Use
  Company Number: None

PATIENT
  Age: 30 Year
  Sex: Male
  Weight: 101.25 kg

DRUGS (2)
  1. FINASTERIDE 5MG [Suspect]
     Active Substance: FINASTERIDE
     Indication: PROSTATITIS
     Dosage: ?          QUANTITY:30 TABLET(S);?
     Route: 048
     Dates: start: 20200131, end: 20200207
  2. ACYCLOVIR. [Concomitant]
     Active Substance: ACYCLOVIR

REACTIONS (7)
  - Feeling abnormal [None]
  - Penis disorder [None]
  - Erectile dysfunction [None]
  - Panic attack [None]
  - Suicidal ideation [None]
  - Disorientation [None]
  - Hypoaesthesia [None]

NARRATIVE: CASE EVENT DATE: 20200208
